FAERS Safety Report 4884333-0 (Version None)
Quarter: 2005Q4

REPORT INFORMATION
  Report Type: 
  Country: None (occurrence: None)
  Receive Date: 20051201
  Receipt Date: 20050903
  Transmission Date: 20060501
  Serious: No
  Sender: FDA-Public Use
  Company Number: 2005PV001571

PATIENT
  Age: 65 Year
  Sex: Female
  Weight: 104.3273 kg

DRUGS (14)
  1. BYETTA [Suspect]
     Indication: DIABETES MELLITUS NON-INSULIN-DEPENDENT
     Dosage: 5 MCG;BID;SC    10 MCG;BID;SC
     Route: 058
     Dates: start: 20050729, end: 20050907
  2. BYETTA [Suspect]
     Indication: DIABETES MELLITUS NON-INSULIN-DEPENDENT
     Dosage: 5 MCG;BID;SC    10 MCG;BID;SC
     Route: 058
     Dates: start: 20050908
  3. OXYGEN [Concomitant]
  4. PREVACID [Concomitant]
  5. PROZAC [Concomitant]
  6. SYNTHROID [Concomitant]
  7. LISINOPRIL [Concomitant]
  8. NEURONTIN [Concomitant]
  9. LASIX [Concomitant]
  10. AMITRIPTYLINE HCL [Concomitant]
  11. ALLEGRA [Concomitant]
  12. HYDROCODONE BITARTRATE [Concomitant]
  13. GLUCOPHAGE [Concomitant]
  14. INSULIN [Concomitant]

REACTIONS (5)
  - CHEST PAIN [None]
  - DIARRHOEA [None]
  - DYSPNOEA [None]
  - FATIGUE [None]
  - NAUSEA [None]
